FAERS Safety Report 7422929-2 (Version None)
Quarter: 2011Q2

REPORT INFORMATION
  Report Type: 
  Country: None (occurrence: None)
  Receive Date: 20110419
  Receipt Date: 20110407
  Transmission Date: 20111010
  Serious: Yes (Hospitalization)
  Sender: FDA-Public Use
  Company Number: IT-SANOFI-AVENTIS-2011SA021081

PATIENT
  Age: 84 Year
  Sex: Female

DRUGS (7)
  1. PREDNISONE [Concomitant]
  2. DRONEDARONE [Suspect]
     Indication: ATRIAL FIBRILLATION
     Route: 048
     Dates: start: 20110115, end: 20110311
  3. PANTOPRAZOLE [Concomitant]
  4. NYSTATIN [Concomitant]
  5. BISOPROLOL FUMARATE [Concomitant]
  6. RAMIPRIL [Concomitant]
  7. POTASSIUM CANRENOATE [Concomitant]

REACTIONS (2)
  - STEVENS-JOHNSON SYNDROME [None]
  - TOXIC EPIDERMAL NECROLYSIS [None]
